FAERS Safety Report 17410041 (Version 2)
Quarter: 2020Q3

REPORT INFORMATION
  Report Type: Spontaneous
  Country: US (occurrence: US)
  Receive Date: 20200212
  Receipt Date: 20200921
  Transmission Date: 20201102
  Serious: Yes (Other)
  Sender: FDA-Public Use
  Company Number: US-PFIZER INC-2019401392

PATIENT
  Age: 43 Year
  Sex: Female

DRUGS (2)
  1. LYRICA [Suspect]
     Active Substance: PREGABALIN
     Dosage: 300 MG, 1X/DAY (TAKE 1 CAPSULE BY MOUTH AT BEDTIME)
     Route: 048
     Dates: start: 20190911, end: 20191209
  2. LYRICA [Suspect]
     Active Substance: PREGABALIN
     Dosage: 150 MG, 2X/DAY (TAKE 1 CAPSULE (150 MG) BY ORAL ROUTE 2 TIMES PER DAY)
     Route: 048
     Dates: start: 20200915

REACTIONS (1)
  - Lower limb fracture [Unknown]
